FAERS Safety Report 15852361 (Version 1)
Quarter: 2019Q1

REPORT INFORMATION
  Report Type: Report from Study
  Country: None (occurrence: TR)
  Receive Date: 20190122
  Receipt Date: 20190122
  Transmission Date: 20190417
  Serious: Yes (Hospitalization)
  Sender: FDA-Public Use
  Company Number: TR-ABBVIE-19S-161-2631685-00

PATIENT
  Age: 74 Year
  Sex: Male
  Weight: 75 kg

DRUGS (6)
  1. SEREQUEL [Concomitant]
     Indication: PARKINSON^S DISEASE
     Route: 048
  2. DUODOPA [Suspect]
     Active Substance: CARBIDOPA\LEVODOPA
     Indication: PARKINSON^S DISEASE
     Dosage: MD:(ML): 9.80,CD(ML): 4.50,ED:(ML): 1.00
     Route: 050
     Dates: start: 20190116
  3. DESYREL [Concomitant]
     Active Substance: TRAZODONE HYDROCHLORIDE
     Indication: SLEEP DISORDER
     Route: 048
  4. RASALAS [Concomitant]
     Indication: PARKINSON^S DISEASE
     Route: 048
  5. DOPADEX SR [Concomitant]
     Indication: PARKINSON^S DISEASE
     Route: 048
  6. SECITA [Concomitant]
     Indication: DEPRESSION
     Route: 048

REACTIONS (1)
  - Hypotension [Recovered/Resolved]

NARRATIVE: CASE EVENT DATE: 20190117
